FAERS Safety Report 4976893-6 (Version None)
Quarter: 2006Q2

REPORT INFORMATION
  Report Type: 
  Country: None (occurrence: None)
  Receive Date: 20060413
  Receipt Date: 20060404
  Transmission Date: 20061013
  Serious: Yes (Hospitalization, Other)
  Sender: FDA-Public Use
  Company Number: 2006047188

PATIENT
  Age: 72 Year
  Sex: Female
  Weight: 127.0072 kg

DRUGS (2)
  1. LIPITOR [Suspect]
     Indication: BLOOD CHOLESTEROL INCREASED
     Dosage: 80 MG (80 MG, 1 IN 1 D)
  2. CELEBREX [Suspect]
     Indication: ARTHRITIS
     Dosage: 200 MG 9200 MG, 1 IN 1 D)

REACTIONS (5)
  - AORTIC VALVE REPLACEMENT [None]
  - CARDIAC FAILURE CONGESTIVE [None]
  - CELLULITIS [None]
  - CHEST PAIN [None]
  - POST PROCEDURAL COMPLICATION [None]
